FAERS Safety Report 9119521 (Version 1)
Quarter: 2013Q1

REPORT INFORMATION
  Report Type: Spontaneous
  Country: US (occurrence: US)
  Receive Date: 20130207
  Receipt Date: 20130207
  Transmission Date: 20140127
  Serious: Yes (Other)
  Sender: FDA-Public Use
  Company Number: US-PFIZER INC-2013051656

PATIENT
  Age: 68 Year
  Sex: Male
  Weight: 104.3 kg

DRUGS (4)
  1. LIPITOR [Suspect]
     Indication: BLOOD CHOLESTEROL INCREASED
     Dosage: 40 MG, 1X/DAY
  2. NEURONTIN [Suspect]
     Dosage: 300 MG, 4X/DAY
  3. DILANTIN [Suspect]
     Dosage: 300 MG, 1X/DAY
  4. METOPROLOL [Concomitant]
     Dosage: 50 MG, 2X/DAY

REACTIONS (1)
  - Musculoskeletal disorder [Unknown]
